FAERS Safety Report 21242362 (Version 1)
Quarter: 2022Q3

REPORT INFORMATION
  Report Type: Report from Study
  Country: BG (occurrence: BG)
  Receive Date: 20220823
  Receipt Date: 20220823
  Transmission Date: 20221027
  Serious: Yes (Death)
  Sender: FDA-Public Use
  Company Number: BG-NOVARTISPH-NVSC2022BG187769

PATIENT
  Age: 64 Year
  Sex: Female
  Weight: 95 kg

DRUGS (1)
  1. COSENTYX [Suspect]
     Active Substance: SECUKINUMAB
     Indication: Product used for unknown indication
     Dosage: 300 MG
     Route: 058
     Dates: start: 20200115

REACTIONS (1)
  - COVID-19 [Fatal]
